FAERS Safety Report 4620526-5 (Version None)
Quarter: 2005Q1

REPORT INFORMATION
  Report Type: 
  Country: None (occurrence: None)
  Receive Date: 20050328
  Receipt Date: 20050315
  Transmission Date: 20050727
  Serious: Yes (Hospitalization)
  Sender: FDA-Public Use
  Company Number: US-GLAXOSMITHKLINE-A0549873A

PATIENT
  Age: 53 Year
  Sex: Female

DRUGS (3)
  1. ADVAIR DISKUS 100/50 [Suspect]
     Indication: BRONCHITIS
     Dosage: 1PUFF TWICE PER DAY
     Route: 055
     Dates: start: 20040409, end: 20040428
  2. GLUCOPHAGE [Concomitant]
  3. VENTOLIN HFA [Concomitant]

REACTIONS (4)
  - CARDIAC DISORDER [None]
  - DYSPNOEA [None]
  - URTICARIA [None]
  - VAGINAL INFECTION [None]
